FAERS Safety Report 25032343 (Version 2)
Quarter: 2025Q3

REPORT INFORMATION
  Report Type: Spontaneous
  Country: EU (occurrence: EU)
  Receive Date: 20250303
  Receipt Date: 20250802
  Transmission Date: 20251021
  Serious: Yes (Hospitalization, Other)
  Sender: ALEXION PHARMACEUTICALS
  Company Number: EU-ASTRAZENECA-202502GLO026205SE

PATIENT
  Age: 19 Year
  Sex: Female

DRUGS (8)
  1. QUETIAPINE FUMARATE [Suspect]
     Active Substance: QUETIAPINE FUMARATE
     Dates: start: 20240825, end: 20240825
  2. LISDEXAMFETAMINE DIMESYLATE [Suspect]
     Active Substance: LISDEXAMFETAMINE DIMESYLATE
     Dates: start: 20240825, end: 20240825
  3. BUSPIRONE [Suspect]
     Active Substance: BUSPIRONE HYDROCHLORIDE
     Dates: start: 20240825, end: 20240825
  4. PROMETHAZINE HYDROCHLORIDE\THIOUREA [Suspect]
     Active Substance: PROMETHAZINE HYDROCHLORIDE\THIOUREA
     Dates: start: 20240825, end: 20240825
  5. IMOVANE [Suspect]
     Active Substance: ZOPICLONE
     Dates: start: 20240825, end: 20240825
  6. SERTRALINE HYDROCHLORIDE [Suspect]
     Active Substance: SERTRALINE HYDROCHLORIDE
     Route: 065
     Dates: start: 20240825, end: 20240825
  7. MELATONIN [Suspect]
     Active Substance: MELATONIN
     Route: 065
  8. MIRTAZAPINE [Suspect]
     Active Substance: MIRTAZAPINE

REACTIONS (2)
  - Intentional self-injury [Unknown]
  - Intentional overdose [Unknown]

NARRATIVE: CASE EVENT DATE: 20240825
